FAERS Safety Report 18562882 (Version 1)
Quarter: 2020Q4

REPORT INFORMATION
  Report Type: Spontaneous
  Country: US (occurrence: US)
  Receive Date: 20201130
  Receipt Date: 20201130
  Transmission Date: 20210114
  Serious: No
  Sender: FDA-Public Use
  Company Number: US-ROCHE-2469487

PATIENT
  Sex: Female

DRUGS (6)
  1. LUCENTIS [Suspect]
     Active Substance: RANIBIZUMAB
     Indication: RETINAL VEIN OCCLUSION
     Dosage: PFS 0.5 MG 0.05ML  INTO RIGHT EYE
     Route: 050
  2. LOSARTAN POTASSIUM. [Concomitant]
     Active Substance: LOSARTAN POTASSIUM
  3. ACETAMIN [Concomitant]
     Active Substance: ACETAMINOPHEN
  4. VITAMIN B12 [Concomitant]
     Active Substance: CYANOCOBALAMIN
  5. LORATADINE. [Concomitant]
     Active Substance: LORATADINE
  6. LATANOPROST. [Concomitant]
     Active Substance: LATANOPROST
     Dosage: SOLUTION 0.005%

REACTIONS (1)
  - Injection site pain [Recovered/Resolved]
